FAERS Safety Report 5605871-9 (Version None)
Quarter: 2008Q1

REPORT INFORMATION
  Report Type: 
  Country: None (occurrence: None)
  Receive Date: 20080129
  Receipt Date: 20080122
  Transmission Date: 20080703
  Serious: No
  Sender: FDA-Public Use
  Company Number: PHFR2007MT03732

PATIENT
  Sex: Male

DRUGS (7)
  1. LEPONEX [Suspect]
     Indication: SCHIZOPHRENIA
     Dosage: 50 MG, TID
     Route: 048
     Dates: start: 20071217
  2. SERENACE [Concomitant]
     Route: 048
  3. ARTANE [Concomitant]
     Route: 048
  4. SEROQUEL [Concomitant]
     Route: 048
  5. PRIADEL [Concomitant]
     Route: 048
  6. ATIVAN [Concomitant]
     Route: 048
  7. MOGADON [Concomitant]
     Route: 048

REACTIONS (1)
  - WHITE BLOOD CELL COUNT INCREASED [None]
